FAERS Safety Report 7672590-7 (Version None)
Quarter: 2011Q3

REPORT INFORMATION
  Report Type: 
  Country: None (occurrence: None)
  Receive Date: 20110809
  Receipt Date: 20110803
  Transmission Date: 20111222
  Serious: Yes (Hospitalization)
  Sender: FDA-Public Use
  Company Number: FR-PFIZER INC-2011164206

PATIENT
  Age: 53 Year
  Sex: Male

DRUGS (10)
  1. AMLODIPINE BESYLATE [Suspect]
     Dosage: UNK
     Route: 048
  2. KEPPRA [Suspect]
     Dosage: UNK
     Route: 048
  3. CITALOPRAM [Suspect]
     Route: 048
  4. PREDNISOLONE [Suspect]
     Dosage: UNK
     Route: 048
     Dates: start: 20110604, end: 20110627
  5. ATORVASTATIN CALCIUM [Suspect]
     Dosage: 10 MG, 1X/DAY
     Route: 048
     Dates: start: 20110530, end: 20110624
  6. RAMIPRIL [Suspect]
     Dosage: UNK
     Route: 048
     Dates: start: 20110604, end: 20110614
  7. EUPRESSYL [Suspect]
     Dosage: UNK
     Route: 048
     Dates: start: 20110529
  8. METHYLPREDNISOLONE [Concomitant]
     Dosage: UNK
     Dates: start: 20110626, end: 20110629
  9. REPAGLINIDE [Suspect]
     Indication: DIABETES MELLITUS
     Dosage: UNK
     Route: 048
     Dates: start: 20110603, end: 20110626
  10. KAYEXALATE [Suspect]
     Dosage: UNK
     Route: 048
     Dates: start: 20110603, end: 20110626

REACTIONS (2)
  - RENAL IMPAIRMENT [None]
  - NEPHROPATHY [None]
